FAERS Safety Report 6919482-6 (Version None)
Quarter: 2010Q3

REPORT INFORMATION
  Report Type: 
  Country: None (occurrence: None)
  Receive Date: 20100811
  Receipt Date: 20100804
  Transmission Date: 20110219
  Serious: Yes (Hospitalization)
  Sender: FDA-Public Use
  Company Number: JP-ROCHE-719952

PATIENT
  Age: 70 Year
  Sex: Female

DRUGS (2)
  1. ROCEPHIN [Suspect]
     Indication: ABDOMINAL PAIN
     Dosage: NOTE: DOSAGE IS UNCERTAIN.
     Route: 042
  2. ROCEPHIN [Suspect]
     Dosage: NOTE: DOSAGE IS UNCERTAIN.
     Route: 042

REACTIONS (3)
  - DEHYDRATION [None]
  - DEPRESSED LEVEL OF CONSCIOUSNESS [None]
  - PSEUDOMEMBRANOUS COLITIS [None]
